FAERS Safety Report 17408811 (Version 2)
Quarter: 2020Q1

REPORT INFORMATION
  Report Type: Report from Study
  Country: US (occurrence: US)
  Receive Date: 20200212
  Receipt Date: 20200218
  Transmission Date: 20200409
  Serious: Yes (Hospitalization)
  Sender: FDA-Public Use
  Company Number: US-009507513-2002USA002336

PATIENT
  Age: 68 Year
  Sex: Female

DRUGS (1)
  1. DULERA [Suspect]
     Active Substance: FORMOTEROL FUMARATE DIHYDRATE\MOMETASONE FUROATE
     Dosage: TWO PUFFS DAILY
     Route: 055
     Dates: end: 201912

REACTIONS (6)
  - Chest discomfort [Unknown]
  - Product dose omission [Unknown]
  - Bronchitis [Not Recovered/Not Resolved]
  - Inappropriate schedule of product administration [Unknown]
  - Adverse event [Unknown]
  - Wheezing [Unknown]

NARRATIVE: CASE EVENT DATE: 201912
